FAERS Safety Report 12892594 (Version 1)
Quarter: 2016Q4

REPORT INFORMATION
  Report Type: Spontaneous
  Country: US (occurrence: US)
  Receive Date: 20161027
  Receipt Date: 20161027
  Transmission Date: 20170207
  Serious: Yes (Hospitalization)
  Sender: FDA-Public Use
  Company Number: None

PATIENT
  Age: 59 Year
  Sex: Female
  Weight: 82.1 kg

DRUGS (1)
  1. METFORMIN HYDROCHLORIDE. [Suspect]
     Active Substance: METFORMIN HYDROCHLORIDE
     Dosage: METFORMIN HELD SINCE 10-21-16 DUE TO CT SCANS
     Dates: end: 20161021

REACTIONS (6)
  - Loss of consciousness [None]
  - Fall [None]
  - Head injury [None]
  - Haematoma [None]
  - Subarachnoid haemorrhage [None]
  - Palpitations [None]

NARRATIVE: CASE EVENT DATE: 20161021
